FAERS Safety Report 13903774 (Version 1)
Quarter: 2017Q3

REPORT INFORMATION
  Report Type: Spontaneous
  Country: US (occurrence: US)
  Receive Date: 20170824
  Receipt Date: 20170824
  Transmission Date: 20171127
  Serious: No
  Sender: FDA-Public Use
  Company Number: US-ACTELION-A-NJ2017-158049

PATIENT
  Age: 47 Year
  Sex: Female

DRUGS (1)
  1. OPSUMIT [Suspect]
     Active Substance: MACITENTAN
     Indication: PULMONARY HYPERTENSION
     Dosage: 10 MG, QD
     Route: 048
     Dates: start: 20170627, end: 20170809

REACTIONS (5)
  - Therapy non-responder [Unknown]
  - Malaise [Unknown]
  - Pulmonary hypertension [Unknown]
  - Disease progression [Unknown]
  - Migraine [Unknown]

NARRATIVE: CASE EVENT DATE: 20170630
